FAERS Safety Report 4939614-9 (Version None)
Quarter: 2006Q1

REPORT INFORMATION
  Report Type: 
  Country: None (occurrence: None)
  Receive Date: 20060307
  Receipt Date: 20060222
  Transmission Date: 20060701
  Serious: Yes (Hospitalization)
  Sender: FDA-Public Use
  Company Number: 2005146743

PATIENT
  Age: 50 Year
  Sex: Male
  Weight: 90 kg

DRUGS (6)
  1. ATORVASTATIN CALCIUM [Suspect]
     Indication: HYPERLIPIDAEMIA
     Dosage: 20 MG (DAILY), ORAL
     Route: 048
     Dates: start: 20050615, end: 20050906
  2. COVERSUM COMBI (INDAPAMIDE, PERINDOPRIL) [Suspect]
     Indication: HYPERTENSION
     Dosage: ORAL
     Route: 048
     Dates: start: 20050615, end: 20051027
  3. MITOMYCIN [Concomitant]
  4. COVERSUM (PERINDOPRIL) [Concomitant]
  5. BISOPROLOL FUMARATE [Concomitant]
  6. ACETYLSALICYLIC ACID SRT [Concomitant]

REACTIONS (14)
  - ANAEMIA MACROCYTIC [None]
  - CHOLECYSTITIS CHRONIC [None]
  - FOREIGN TRAVEL [None]
  - GALLBLADDER DISORDER [None]
  - HAEMOLYSIS [None]
  - HEPATIC STEATOSIS [None]
  - HEPATITIS CHOLESTATIC [None]
  - HEPATITIS TOXIC [None]
  - HYPERCHROMIC ANAEMIA [None]
  - LIPASE INCREASED [None]
  - MEAN CELL HAEMOGLOBIN INCREASED [None]
  - MEAN CELL VOLUME INCREASED [None]
  - NAUSEA [None]
  - VOMITING [None]
